FAERS Safety Report 8767555 (Version 3)
Quarter: 2012Q4

REPORT INFORMATION
  Report Type: 
  Country: GB (occurrence: GB)
  Receive Date: 20120904
  Receipt Date: 20121015
  Transmission Date: 20130627
  Serious: Yes (Hospitalization)
  Sender: FDA-Public Use
  Company Number: PHHY2012GB072652

PATIENT
  Age: 56 Year
  Sex: Male
  Weight: 59 kg

DRUGS (12)
  1. CLOPIDOGREL [Suspect]
     Indication: ACUTE CORONARY SYNDROME
     Dosage: 300 mg, QD
     Route: 048
     Dates: start: 20120730, end: 20120730
  2. CLOPIDOGREL [Suspect]
     Dosage: 300 mg, QD
     Route: 048
     Dates: start: 20120731, end: 20120731
  3. CLOPIDOGREL [Suspect]
     Dosage: 75 mg, QD
     Route: 048
     Dates: start: 20120731
  4. ACETYLSALICYLIC ACID [Suspect]
     Indication: ACUTE CORONARY SYNDROME
     Route: 048
  5. ACETYLSALICYLIC ACID [Suspect]
     Dosage: 300 mg, QD
     Route: 048
  6. PLACEBO [Suspect]
     Indication: ACUTE CORONARY SYNDROME
     Route: 042
     Dates: start: 20120731, end: 20120731
  7. BISOPROLOL [Concomitant]
     Dates: start: 20120730
  8. FONDAPARINUX [Concomitant]
     Dosage: 2.5 mg, QD
     Route: 058
     Dates: start: 20120731, end: 20120731
  9. METOCLOPRAMIDE [Concomitant]
     Dosage: 10 mg, QD
     Dates: start: 20120731, end: 20120731
  10. MORPHINE [Concomitant]
     Dosage: 7.5 mg, QD
     Dates: start: 20120730, end: 20120730
  11. NORMAL SALINE [Concomitant]
     Dosage: 2 l, QD
     Dates: start: 20120731, end: 20120731
  12. SIMVASTATIN [Concomitant]
     Dosage: 40 mg, QD
     Dates: start: 20120730

REACTIONS (2)
  - Haematemesis [Recovered/Resolved]
  - Pericardial haemorrhage [Recovered/Resolved]
